FAERS Safety Report 9599545 (Version 1)
Quarter: 2013Q4

REPORT INFORMATION
  Report Type: Spontaneous
  Country: US (occurrence: US)
  Receive Date: 20131004
  Receipt Date: 20131004
  Transmission Date: 20140711
  Serious: No
  Sender: FDA-Public Use
  Company Number: US-AMGEN-USASP2013029384

PATIENT
  Age: 42 Year
  Sex: Female

DRUGS (16)
  1. ENBREL [Suspect]
     Indication: PRODUCT USED FOR UNKNOWN INDICATION
     Dosage: 50 MG, 2 TIMES/WK
     Route: 058
     Dates: start: 20121001, end: 201302
  2. PREDNISONE [Concomitant]
     Dosage: 1 MG, UNK
  3. CELEBREX [Concomitant]
     Dosage: 100 MG, UNK
  4. OPANA [Concomitant]
     Dosage: 10 MG, UNK
  5. PROZAC [Concomitant]
     Dosage: 10 MG, UNK
  6. SYNTHROID [Concomitant]
     Dosage: 25 MCG, UNK
  7. DEMADEX                            /01036501/ [Concomitant]
     Dosage: 10 MG, UNK
  8. LYRICA [Concomitant]
     Dosage: 25 MG, UNK
  9. PHENTERMINE [Concomitant]
     Dosage: 15 MG, UNK
  10. WELLBUTRIN [Concomitant]
     Dosage: 200 MG, UNK
  11. POTASSIUM [Concomitant]
     Dosage: 75 MG, UNK
  12. TOPAMAX [Concomitant]
     Dosage: 25 MG, UNK
  13. NEXIUM                             /01479302/ [Concomitant]
     Dosage: 20 MG, UNK
  14. MINOCYCLINE [Concomitant]
     Dosage: 50 MG, UNK
  15. PARAFON FORTE [Concomitant]
     Dosage: 500 MG, UNK
  16. VITAMIN D                          /00107901/ [Concomitant]
     Dosage: 400 UNIT, UNK

REACTIONS (3)
  - Abdominal pain upper [Unknown]
  - Nausea [Unknown]
  - Arthralgia [Unknown]
